FAERS Safety Report 17120019 (Version 2)
Quarter: 2019Q4

REPORT INFORMATION
  Report Type: Spontaneous
  Country: BR (occurrence: BR)
  Receive Date: 20191206
  Receipt Date: 20191220
  Transmission Date: 20200122
  Serious: Yes (Other)
  Sender: FDA-Public Use
  Company Number: NVSC2019BR058258

PATIENT
  Sex: Male
  Weight: 75 kg

DRUGS (1)
  1. DUOTRAV BAK FREE [Suspect]
     Active Substance: TIMOLOL\TRAVOPROST
     Indication: GLAUCOMA
     Dosage: 1 DRP (EACH EYE)
     Route: 047

REACTIONS (1)
  - Dementia Alzheimer^s type [Not Recovered/Not Resolved]
